FAERS Safety Report 17942074 (Version 1)
Quarter: 2020Q2

REPORT INFORMATION
  Report Type: Spontaneous
  Country: US (occurrence: US)
  Receive Date: 20200624
  Receipt Date: 20200624
  Transmission Date: 20200714
  Serious: Yes (Other)
  Sender: FDA-Public Use
  Company Number: None

PATIENT
  Age: 56 Year
  Sex: Female
  Weight: 57.15 kg

DRUGS (1)
  1. NOVOLOG [Suspect]
     Active Substance: INSULIN ASPART
     Indication: TYPE 1 DIABETES MELLITUS
     Dosage: ?          QUANTITY:1 VIAL;OTHER FREQUENCY:7 TIMES DAILY;OTHER ROUTE:INJECTION?
     Dates: start: 20200524, end: 20200531

REACTIONS (8)
  - Dysphagia [None]
  - Fatigue [None]
  - Headache [None]
  - Generalised oedema [None]
  - Rash pruritic [None]
  - Eye swelling [None]
  - Product substitution issue [None]
  - Blood glucose increased [None]

NARRATIVE: CASE EVENT DATE: 20200524
